FAERS Safety Report 12527678 (Version 2)
Quarter: 2016Q3

REPORT INFORMATION
  Report Type: Report from Study
  Country: IL (occurrence: IL)
  Receive Date: 20160705
  Receipt Date: 20160901
  Transmission Date: 20161109
  Serious: Yes (Hospitalization, Other)
  Sender: FDA-Public Use
  Company Number: PHHY2016IL038409

PATIENT
  Age: 59 Year
  Sex: Male
  Weight: 91.9 kg

DRUGS (2)
  1. GLUCOMIN [Concomitant]
     Active Substance: METFORMIN HYDROCHLORIDE
     Indication: PRODUCT USED FOR UNKNOWN INDICATION
     Route: 065
  2. TASIGNA [Suspect]
     Active Substance: NILOTINIB
     Indication: CHRONIC MYELOID LEUKAEMIA
     Dosage: 400 MG, BID
     Route: 048
     Dates: start: 200907

REACTIONS (13)
  - Weight decreased [Unknown]
  - Pain [Not Recovered/Not Resolved]
  - Tendon rupture [Not Recovered/Not Resolved]
  - Inflammation [Recovering/Resolving]
  - Myocarditis [Recovered/Resolved]
  - Musculoskeletal pain [Not Recovered/Not Resolved]
  - Chest discomfort [Not Recovered/Not Resolved]
  - Diabetes mellitus [Unknown]
  - Blood cholesterol increased [Unknown]
  - Decreased appetite [Unknown]
  - Muscle spasms [Unknown]
  - Abdominal pain [Not Recovered/Not Resolved]
  - Abdominal discomfort [Unknown]

NARRATIVE: CASE EVENT DATE: 20160511
